FAERS Safety Report 7504875-9 (Version None)
Quarter: 2011Q2

REPORT INFORMATION
  Report Type: 
  Country: None (occurrence: None)
  Receive Date: 20110526
  Receipt Date: 20110517
  Transmission Date: 20111010
  Serious: Yes (Hospitalization, Other)
  Sender: FDA-Public Use
  Company Number: US-BIOGENIDEC-2010BI032229

PATIENT
  Age: 52 Year
  Sex: Male

DRUGS (3)
  1. XANAX [Concomitant]
  2. TYSABRI [Suspect]
     Indication: MULTIPLE SCLEROSIS
     Route: 042
     Dates: start: 20091119, end: 20100805
  3. LUNESTA [Concomitant]

REACTIONS (8)
  - BALANCE DISORDER [None]
  - ERECTILE DYSFUNCTION [None]
  - SPINAL CORD INJURY [None]
  - ABASIA [None]
  - URINARY INCONTINENCE [None]
  - ROAD TRAFFIC ACCIDENT [None]
  - FAECAL INCONTINENCE [None]
  - GAIT DISTURBANCE [None]
